FAERS Safety Report 10192227 (Version 1)
Quarter: 2014Q2

REPORT INFORMATION
  Report Type: Spontaneous
  Country: US (occurrence: US)
  Receive Date: 20140523
  Receipt Date: 20140523
  Transmission Date: 20141212
  Serious: No
  Sender: FDA-Public Use
  Company Number: US-AMARIN PHARMA, INC.-2014AMR000011

PATIENT
  Age: 72 Year
  Sex: Female
  Weight: 80.36 kg

DRUGS (7)
  1. VASCEPA [Suspect]
     Indication: BLOOD TRIGLYCERIDES
     Route: 065
     Dates: start: 20140107
  2. SYNTHROID [Concomitant]
     Indication: HYPOTHYROIDISM
     Route: 065
  3. METOPROLOL [Concomitant]
     Indication: PALPITATIONS
     Route: 065
  4. PROTONIX [Concomitant]
     Indication: GASTROOESOPHAGEAL REFLUX DISEASE
     Route: 065
  5. AMBIEN [Concomitant]
     Indication: INSOMNIA
     Route: 065
  6. XANAX [Concomitant]
     Indication: PRODUCT USED FOR UNKNOWN INDICATION
     Route: 065
  7. VITAMINS [Concomitant]
     Indication: PRODUCT USED FOR UNKNOWN INDICATION
     Route: 065

REACTIONS (1)
  - Alopecia [Unknown]
